FAERS Safety Report 22151685 (Version 1)
Quarter: 2023Q1

REPORT INFORMATION
  Report Type: Spontaneous
  Country: AU (occurrence: None)
  Receive Date: 20230329
  Receipt Date: 20230329
  Transmission Date: 20230418
  Serious: Yes (Other)
  Sender: FDA-Public Use
  Company Number: 2023A067289

PATIENT
  Age: 62 Year
  Sex: Male

DRUGS (5)
  1. DURVALUMAB [Suspect]
     Active Substance: DURVALUMAB
     Route: 042
  2. GEMCITABINE [Suspect]
     Active Substance: GEMCITABINE
  3. CARBOPLATIN [Suspect]
     Active Substance: CARBOPLATIN
  4. CISPLATIN [Suspect]
     Active Substance: CISPLATIN
  5. ETOPOSIDE [Suspect]
     Active Substance: ETOPOSIDE

REACTIONS (3)
  - Metastases to bone [Unknown]
  - Metastases to central nervous system [Unknown]
  - Metastases to lung [Unknown]
